FAERS Safety Report 8498502 (Version 3)
Quarter: 2014Q2

REPORT INFORMATION
  Report Type: Spontaneous
  Country: BR (occurrence: BR)
  Receive Date: 20120406
  Receipt Date: 20140521
  Transmission Date: 20141212
  Serious: Yes (Life-Threatening, Hospitalization, Disabling)
  Sender: FDA-Public Use
  Company Number: BR-ASTRAZENECA-2012SE21823

PATIENT
  Age: 65 Year
  Sex: Male
  Weight: 98 kg

DRUGS (16)
  1. CRESTOR [Suspect]
     Indication: BLOOD CHOLESTEROL INCREASED
     Route: 048
  2. CRESTOR [Suspect]
     Indication: BLOOD TRIGLYCERIDES INCREASED
     Route: 048
  3. CRESTOR [Suspect]
     Indication: BLOOD CHOLESTEROL INCREASED
     Route: 048
  4. CRESTOR [Suspect]
     Indication: BLOOD TRIGLYCERIDES INCREASED
     Route: 048
  5. CRESTOR [Suspect]
     Indication: BLOOD CHOLESTEROL INCREASED
     Route: 048
     Dates: start: 201304
  6. CRESTOR [Suspect]
     Indication: BLOOD TRIGLYCERIDES INCREASED
     Route: 048
     Dates: start: 201304
  7. BRILINTA [Suspect]
     Indication: MYOCARDIAL INFARCTION
     Route: 048
     Dates: start: 201304
  8. DIOVAN [Concomitant]
     Route: 048
  9. SOMALGIN CARDIO [Concomitant]
     Route: 048
  10. DAFLON [Concomitant]
     Route: 048
  11. MAREVAN [Concomitant]
  12. METFORMIN [Concomitant]
  13. DAONIL [Concomitant]
  14. UNKNOWN [Concomitant]
     Indication: HYPERTENSION
  15. UNKNOWN 1 [Concomitant]
     Indication: THYROID DISORDER
  16. UNKNOWN 2 [Concomitant]
     Indication: CARDIAC DISORDER

REACTIONS (11)
  - Cardiac arrest [Recovered/Resolved]
  - Pulmonary embolism [Recovered/Resolved]
  - Myocardial infarction [Recovered/Resolved]
  - Neurocysticercosis [Recovered/Resolved with Sequelae]
  - Thrombosis [Unknown]
  - Peripheral swelling [Recovered/Resolved]
  - Musculoskeletal disorder [Unknown]
  - Restlessness [Not Recovered/Not Resolved]
  - Dyspepsia [Not Recovered/Not Resolved]
  - Swelling face [Recovered/Resolved]
  - Inappropriate schedule of drug administration [Recovered/Resolved]
